FAERS Safety Report 25135442 (Version 2)
Quarter: 2025Q2

REPORT INFORMATION
  Report Type: Spontaneous
  Country: US (occurrence: US)
  Receive Date: 20250328
  Receipt Date: 20250408
  Transmission Date: 20250717
  Serious: Yes (Life-Threatening, Hospitalization, Other)
  Sender: CIPLA
  Company Number: US-MLMSERVICE-20250313-PI443942-00052-1

PATIENT

DRUGS (3)
  1. AMOXICILLIN\CLAVULANIC ACID [Suspect]
     Active Substance: AMOXICILLIN\CLAVULANIC ACID
     Indication: Sinusitis bacterial
     Dosage: UNK, BID
     Route: 065
  2. AMLODIPINE [Concomitant]
     Active Substance: AMLODIPINE BESYLATE
     Indication: Product used for unknown indication
     Dosage: 10 MILLIGRAM, QD
     Route: 065
  3. ALLOPURINOL [Concomitant]
     Active Substance: ALLOPURINOL
     Indication: Product used for unknown indication
     Dosage: 100 MILLIGRAM, QD
     Route: 065

REACTIONS (7)
  - Hepatic failure [Recovering/Resolving]
  - Renal failure [Recovered/Resolved]
  - Nephropathy [Recovered/Resolved]
  - Drug-induced liver injury [Recovered/Resolved]
  - Tubulointerstitial nephritis [Recovered/Resolved]
  - Cholestatic liver injury [Recovering/Resolving]
  - Coagulopathy [Recovered/Resolved]
